FAERS Safety Report 15909953 (Version 1)
Quarter: 2019Q1

REPORT INFORMATION
  Report Type: Spontaneous
  Country: US (occurrence: US)
  Receive Date: 20190204
  Receipt Date: 20190204
  Transmission Date: 20190417
  Serious: No
  Sender: FDA-Public Use
  Company Number: US-ABBVIE-18K-163-2239587-00

PATIENT
  Sex: Female
  Weight: 68 kg

DRUGS (3)
  1. HUMIRA [Suspect]
     Active Substance: ADALIMUMAB
     Indication: PRODUCT USED FOR UNKNOWN INDICATION
     Route: 058
  2. ABALOPARATIDE [Suspect]
     Active Substance: ABALOPARATIDE
     Indication: POSTMENOPAUSE
     Route: 058
     Dates: start: 201711
  3. ABALOPARATIDE [Suspect]
     Active Substance: ABALOPARATIDE
     Indication: OSTEOPOROSIS

REACTIONS (1)
  - Cystitis [Recovering/Resolving]
